FAERS Safety Report 10252363 (Version 1)
Quarter: 2014Q2

REPORT INFORMATION
  Report Type: Report from Study
  Country: FR (occurrence: FR)
  Receive Date: 20140623
  Receipt Date: 20140623
  Transmission Date: 20141212
  Serious: Yes (Hospitalization)
  Sender: FDA-Public Use
  Company Number: FR-ROCHE-1421993

PATIENT
  Sex: Male

DRUGS (11)
  1. TOCILIZUMAB [Suspect]
     Indication: RHEUMATOID ARTHRITIS
     Route: 065
     Dates: start: 20120808
  2. TOCILIZUMAB [Suspect]
     Route: 065
     Dates: start: 20120910
  3. TOCILIZUMAB [Suspect]
     Route: 065
     Dates: start: 20121024
  4. TOCILIZUMAB [Suspect]
     Route: 065
     Dates: start: 20121126, end: 20130312
  5. LEVOTHYROX [Concomitant]
     Route: 065
  6. SEREVENT [Concomitant]
  7. FLIXOTIDE [Concomitant]
  8. PROFENID [Concomitant]
  9. WYSTAMM [Concomitant]
  10. AERIUS [Concomitant]
     Route: 065
  11. RITUXIMAB [Concomitant]
     Route: 065
     Dates: start: 20130924

REACTIONS (4)
  - Hepatocellular injury [Unknown]
  - Bronchopneumonia [Unknown]
  - Rash [Unknown]
  - Pruritus [Unknown]
